FAERS Safety Report 25988092 (Version 3)
Quarter: 2025Q4

REPORT INFORMATION
  Report Type: Spontaneous
  Country: JP (occurrence: JP)
  Receive Date: 20251103
  Receipt Date: 20251124
  Transmission Date: 20260118
  Serious: Yes (Death, Other)
  Sender: ROCHE
  Company Number: JP-CHUGAI-2025034569

PATIENT
  Age: 8 Decade
  Sex: Male

DRUGS (1)
  1. HEMLIBRA [Suspect]
     Active Substance: EMICIZUMAB-KXWH
     Indication: Acquired haemophilia
     Dosage: UNK
     Route: 058
     Dates: start: 20251015, end: 20251029

REACTIONS (3)
  - Surgery [Recovered/Resolved]
  - Haemorrhage [Recovered/Resolved]
  - Gastric cancer [Fatal]
